FAERS Safety Report 6070295-X (Version None)
Quarter: 2009Q1

REPORT INFORMATION
  Report Type: 
  Country: None (occurrence: None)
  Receive Date: 20090209
  Receipt Date: 20090113
  Transmission Date: 20090719
  Serious: Yes (Hospitalization, Other)
  Sender: FDA-Public Use
  Company Number: DE-PFIZER INC-2006062226

PATIENT

DRUGS (5)
  1. SUNITINIB MALATE [Suspect]
     Indication: METASTATIC RENAL CELL CARCINOMA
     Route: 048
     Dates: start: 20060222, end: 20060321
  2. SUNITINIB MALATE [Suspect]
     Route: 048
     Dates: start: 20060405, end: 20060502
  3. ASPIRIN [Concomitant]
     Dosage: UNK
     Route: 048
     Dates: start: 20020101
  4. AMIODARONE [Concomitant]
     Dosage: UNK
     Route: 048
     Dates: start: 20020101
  5. DIGITOXIN [Concomitant]
     Dosage: UNK
     Route: 048
     Dates: start: 20060412, end: 20060420

REACTIONS (6)
  - ANOREXIA [None]
  - BRADYCARDIA [None]
  - DEHYDRATION [None]
  - LABILE BLOOD PRESSURE [None]
  - NAUSEA [None]
  - VOMITING [None]
